FAERS Safety Report 4951371-9 (Version None)
Quarter: 2006Q1

REPORT INFORMATION
  Report Type: 
  Country: None (occurrence: None)
  Receive Date: 20060317
  Receipt Date: 20060309
  Transmission Date: 20060701
  Serious: Yes (Hospitalization)
  Sender: FDA-Public Use
  Company Number: WAES 0510COL00001

PATIENT
  Age: 66 Year
  Sex: Male

DRUGS (11)
  1. COZAAR [Suspect]
     Indication: CARDIAC FAILURE CONGESTIVE
     Dosage: SEE IMAGE
     Route: 048
     Dates: start: 20030627, end: 20050930
  2. COZAAR [Suspect]
     Indication: CARDIAC FAILURE CONGESTIVE
     Dosage: SEE IMAGE
     Route: 048
     Dates: start: 20051001, end: 20051016
  3. COZAAR [Suspect]
     Indication: CARDIAC FAILURE CONGESTIVE
     Dosage: SEE IMAGE
     Route: 048
     Dates: start: 20051222
  4. GLYBURIDE [Suspect]
     Dosage: 500 / DAILY
     Route: 048
     Dates: start: 20050712, end: 20051201
  5. ASPIRIN [Concomitant]
  6. BETAHISTINE MALEATE [Concomitant]
  7. CANDESARTAN CILEXETIL [Concomitant]
  8. CARVEDILOL [Concomitant]
  9. FUROSEMIDE [Concomitant]
  10. LOVASTATIN [Concomitant]
  11. PENTOXIFYLLINE [Concomitant]

REACTIONS (13)
  - ASTHENIA [None]
  - BLOOD PRESSURE SYSTOLIC INCREASED [None]
  - BODY TEMPERATURE DECREASED [None]
  - BREATH SOUNDS ABNORMAL [None]
  - DEPRESSED LEVEL OF CONSCIOUSNESS [None]
  - HYPERHIDROSIS [None]
  - HYPOGLYCAEMIA [None]
  - INSULINOMA [None]
  - MEDICATION ERROR [None]
  - METABOLIC DISORDER [None]
  - RESPIRATORY RATE INCREASED [None]
  - SOMNOLENCE [None]
  - TREMOR [None]
